FAERS Safety Report 5307628-5 (Version None)
Quarter: 2007Q2

REPORT INFORMATION
  Report Type: 
  Country: None (occurrence: None)
  Receive Date: 20070425
  Receipt Date: 20070419
  Transmission Date: 20071010
  Serious: Yes (Hospitalization)
  Sender: FDA-Public Use
  Company Number: AU-BOEHRINGER INGELHEIM PHARMACEUTICALS, INC.-2007-BP-05453AU

PATIENT
  Sex: Male

DRUGS (4)
  1. ASASANTIN SR (CAPSULE, LONG ACTING) [Suspect]
     Route: 048
     Dates: end: 20060912
  2. MOBIC [Suspect]
     Route: 048
     Dates: start: 20060312, end: 20060912
  3. DONEPEZIL HCL [Concomitant]
     Route: 048
  4. RABEPRAZOLE SODIUM [Concomitant]
     Route: 048

REACTIONS (2)
  - CARDIAC FAILURE CONGESTIVE [None]
  - CHEST PAIN [None]
